FAERS Safety Report 5301577-4 (Version None)
Quarter: 2007Q2

REPORT INFORMATION
  Report Type: 
  Country: None (occurrence: None)
  Receive Date: 20070412
  Receipt Date: 20070405
  Transmission Date: 20071010
  Serious: No
  Sender: FDA-Public Use
  Company Number: TAP2007Q00421

PATIENT
  Age: 59 Year
  Sex: Male

DRUGS (6)
  1. LUPRON DEPOT-3 [Suspect]
     Indication: PROSTATE CANCER
     Dosage: 30 MG, 1 IN 3 M, INTRAMUSCULAR
     Route: 030
     Dates: start: 20050816
  2. PROSCAR [Concomitant]
  3. DALMANE [Concomitant]
  4. REMERON [Concomitant]
  5. CASODEX [Concomitant]
  6. IMOVANE (ZOPICLONE) [Concomitant]

REACTIONS (5)
  - CATARACT [None]
  - MUSCULOSKELETAL PAIN [None]
  - PHOTOPSIA [None]
  - RETINAL DETACHMENT [None]
  - VISUAL DISTURBANCE [None]
